FAERS Safety Report 25562065 (Version 1)
Quarter: 2025Q3

REPORT INFORMATION
  Report Type: Report from Study
  Country: CO (occurrence: CO)
  Receive Date: 20250716
  Receipt Date: 20250716
  Transmission Date: 20251020
  Serious: Yes (Other)
  Sender: ABBVIE
  Company Number: CO-ABBVIE-6368994

PATIENT
  Age: 75 Year
  Sex: Male
  Weight: 74 kg

DRUGS (1)
  1. SKYRIZI [Suspect]
     Active Substance: RISANKIZUMAB-RZAA
     Indication: Psoriasis
     Route: 058
     Dates: start: 20230605, end: 20250106

REACTIONS (3)
  - Cholelithiasis [Unknown]
  - Abdominal pain [Recovering/Resolving]
  - Inguinal hernia [Unknown]

NARRATIVE: CASE EVENT DATE: 20250101
